FAERS Safety Report 6898249-1 (Version None)
Quarter: 2010Q3

REPORT INFORMATION
  Report Type: 
  Country: None (occurrence: None)
  Receive Date: 20100802
  Receipt Date: 20070920
  Transmission Date: 20110219
  Serious: Yes (Other)
  Sender: FDA-Public Use
  Company Number: US-PFIZER INC-2007075577

PATIENT
  Sex: Male
  Weight: 72.727 kg

DRUGS (4)
  1. LYRICA [Suspect]
     Indication: GRAND MAL CONVULSION
     Dates: start: 20060101
  2. TEGRETOL [Concomitant]
  3. ZONEGRAN [Concomitant]
  4. LORAZEPAM [Concomitant]

REACTIONS (5)
  - CONVULSION [None]
  - DYSARTHRIA [None]
  - GAIT DISTURBANCE [None]
  - URINARY INCONTINENCE [None]
  - VISION BLURRED [None]
